FAERS Safety Report 4307695-1 (Version None)
Quarter: 2004Q1

REPORT INFORMATION
  Report Type: 
  Country: None (occurrence: None)
  Receive Date: 20040226
  Receipt Date: 20040213
  Transmission Date: 20041129
  Serious: Yes (Hospitalization)
  Sender: FDA-Public Use
  Company Number: 2004020002

PATIENT
  Age: 82 Year
  Sex: Male

DRUGS (4)
  1. DORAL [Suspect]
     Indication: INSOMNIA
     Dosage: 15 MG HS, PO
     Route: 048
     Dates: start: 20031106, end: 20031209
  2. LOSARTAN (LOSARTAN POTSSIUM) [Concomitant]
  3. EVIPROSTAT (EVIPROSTAT) [Concomitant]
  4. FLUVOXAMINE MALEATE [Concomitant]

REACTIONS (4)
  - COMA [None]
  - HYPOVENTILATION [None]
  - PALLOR [None]
  - SOMNOLENCE [None]
